FAERS Safety Report 7990698-3 (Version None)
Quarter: 2011Q4

REPORT INFORMATION
  Report Type: 
  Country: None (occurrence: None)
  Receive Date: 20111219
  Receipt Date: 20111219
  Transmission Date: 20120403
  Serious: Yes (Hospitalization, Other)
  Sender: FDA-Public Use
  Company Number: None

PATIENT
  Age: 19 Year
  Sex: Female
  Weight: 128.36 kg

DRUGS (2)
  1. RISPERIDONE [Suspect]
     Indication: AFFECTIVE DISORDER
     Dosage: 1MG
     Route: 048
     Dates: start: 20100410, end: 20111217
  2. DIVALPROEX   EC TAB [Concomitant]
     Indication: MANIA
     Dosage: 500MG EC 500MG DR
     Route: 048
     Dates: start: 20100212, end: 20111217

REACTIONS (2)
  - AMENORRHOEA [None]
  - WEIGHT INCREASED [None]
